FAERS Safety Report 5465728-3 (Version None)
Quarter: 2007Q3

REPORT INFORMATION
  Report Type: 
  Country: None (occurrence: None)
  Receive Date: 20070924
  Receipt Date: 20070920
  Transmission Date: 20080115
  Serious: Yes (Other)
  Sender: FDA-Public Use
  Company Number: A0677348A

PATIENT

DRUGS (1)
  1. ALLI [Suspect]
     Indication: DRUG USE FOR UNKNOWN INDICATION

REACTIONS (5)
  - CONSTIPATION [None]
  - FLATULENCE [None]
  - HEPATIC ENZYME INCREASED [None]
  - INFREQUENT BOWEL MOVEMENTS [None]
  - PAINFUL DEFAECATION [None]
